FAERS Safety Report 6262496-2 (Version None)
Quarter: 2009Q3

REPORT INFORMATION
  Report Type: 
  Country: None (occurrence: None)
  Receive Date: 20090709
  Receipt Date: 20090619
  Transmission Date: 20100115
  Serious: Yes (Disabling)
  Sender: FDA-Public Use
  Company Number: PHHY2009FR24856

PATIENT
  Sex: Female

DRUGS (2)
  1. TEGRETOL-XR [Suspect]
     Indication: EPILEPSY
     Dosage: 3 DF (200 MG) DAILY
     Dates: end: 19900101
  2. TEGRETOL-XR [Suspect]
     Dosage: 2 DF (200 MG) DAILY
     Dates: start: 19900101

REACTIONS (5)
  - COGNITIVE DISORDER [None]
  - MENTAL DISORDER [None]
  - TOOTH DISCOLOURATION [None]
  - TOOTH EXTRACTION [None]
  - TOOTH FRACTURE [None]
